FAERS Safety Report 5931433-X (Version None)
Quarter: 2008Q4

REPORT INFORMATION
  Report Type: 
  Country: None (occurrence: None)
  Receive Date: 20081024
  Receipt Date: 20081024
  Transmission Date: 20090506
  Serious: No
  Sender: FDA-Public Use
  Company Number: None

PATIENT
  Sex: Male

DRUGS (1)
  1. ZYPREXA [Suspect]
     Dosage: 20MG WAFERS HS PO
     Route: 048
     Dates: start: 20080624, end: 20080919

REACTIONS (1)
  - WEIGHT INCREASED [None]
